FAERS Safety Report 16760458 (Version 1)
Quarter: 2019Q3

REPORT INFORMATION
  Report Type: Spontaneous
  Country: US (occurrence: US)
  Receive Date: 20190712
  Receipt Date: 20190712
  Transmission Date: 20191005
  Serious: No
  Sender: FDA-Public Use
  Company Number: None

PATIENT
  Age: 61 Year
  Sex: Male

DRUGS (1)
  1. ABIRATERONE 250MG TAB [Suspect]
     Active Substance: ABIRATERONE
     Route: 048
     Dates: start: 201905

REACTIONS (4)
  - Feeling abnormal [None]
  - Fall [None]
  - Memory impairment [None]
  - Arthralgia [None]

NARRATIVE: CASE EVENT DATE: 20190712
